FAERS Safety Report 9563747 (Version 1)
Quarter: 2013Q1

REPORT INFORMATION
  Report Type: Spontaneous
  Country: US (occurrence: None)
  Receive Date: 20121214
  Receipt Date: 20121214
  Transmission Date: 20140127
  Serious: Yes (Hospitalization, Other)
  Sender: FDA-Public Use
  Company Number: 1201USA01274

PATIENT
  Age: 56 Year
  Sex: Male
  Weight: 85.7 kg

DRUGS (4)
  1. JANUVIA (SITAGLIPTIN PHOSPHATE) FILM-COATED TABLET [Suspect]
     Route: 048
  2. MK-9378 (METFORMIN) [Concomitant]
  3. LIPITOR (ATORVASTATIN CALCIUM) [Concomitant]
  4. GLIPIZIDE [Concomitant]

REACTIONS (1)
  - Pancreatitis [None]
